FAERS Safety Report 9009086 (Version 1)
Quarter: 2013Q1

REPORT INFORMATION
  Report Type: Spontaneous
  Country: FR (occurrence: FR)
  Receive Date: 20130111
  Receipt Date: 20130111
  Transmission Date: 20140127
  Serious: Yes (Other)
  Sender: FDA-Public Use
  Company Number: FR-009507513-1301FRA001512

PATIENT
  Sex: Female

DRUGS (3)
  1. COZAAR [Suspect]
     Indication: HYPERTENSION
     Dosage: 1 DF, QD
     Route: 048
     Dates: end: 201209
  2. CELECTOL [Suspect]
     Indication: HYPERTENSION
     Dosage: 200 MG, QD
     Route: 048
  3. DIANE [Concomitant]
     Indication: CONTRACEPTION
     Route: 048

REACTIONS (4)
  - Abortion induced [Unknown]
  - Exposure during pregnancy [Unknown]
  - Oligohydramnios [None]
  - Renal tubular disorder [None]
